FAERS Safety Report 18818555 (Version 4)
Quarter: 2021Q2

REPORT INFORMATION
  Report Type: Report from Study
  Country: KR (occurrence: KR)
  Receive Date: 20210202
  Receipt Date: 20210504
  Transmission Date: 20210717
  Serious: Yes (Hospitalization, Other)
  Sender: FDA-Public Use
  Company Number: KR-TAKEDA-2021TUS005396

PATIENT
  Age: 69 Year
  Sex: Female

DRUGS (36)
  1. LECTACIN [Concomitant]
     Indication: INFECTION PROPHYLAXIS
     Dosage: UNK UNK, QD
     Route: 048
     Dates: start: 20191023, end: 20191107
  2. SEPTRIN [Concomitant]
     Active Substance: SULFAMETHOXAZOLE\TRIMETHOPRIM
     Indication: INFECTION PROPHYLAXIS
     Dosage: UNK UNK, QD
     Route: 048
     Dates: start: 20191024, end: 20191204
  3. VINCRISTINE SULFATE. [Concomitant]
     Active Substance: VINCRISTINE SULFATE
     Indication: CHEMOTHERAPY
     Dosage: 1.6 MILLIGRAM, QD
     Route: 042
     Dates: start: 20191026, end: 20191026
  4. NUTRIFLEX [AMINO ACIDS NOS;CARBOHYDRATES NOS;ELECTROLYTES NOS] [Concomitant]
     Indication: NUTRITIONAL SUPPLEMENTATION
     Dosage: UNK UNK, QD
     Route: 042
     Dates: start: 20191029, end: 20191029
  5. DIABEX [Concomitant]
     Active Substance: METFORMIN HYDROCHLORIDE
     Indication: DIABETES MELLITUS
     Dosage: UNK, BID
     Route: 048
     Dates: start: 20181129
  6. URSA [Concomitant]
     Active Substance: URSODIOL
     Indication: PROPHYLAXIS
     Dosage: UNK UNK, TID
     Route: 048
     Dates: start: 20191010, end: 20191204
  7. URSA [Concomitant]
     Active Substance: URSODIOL
     Indication: LIVER DISORDER
  8. SANCUSO [Concomitant]
     Active Substance: GRANISETRON
     Indication: PROPHYLAXIS OF NAUSEA AND VOMITING
     Dosage: UNK, QD
     Route: 062
     Dates: start: 20191023, end: 20191029
  9. ENDOXAN [CYCLOPHOSPHAMIDE] [Concomitant]
     Active Substance: CYCLOPHOSPHAMIDE
     Indication: CHEMOTHERAPY
     Dosage: 360 MILLIGRAM, BID
     Route: 042
     Dates: start: 20191023, end: 20191025
  10. LASIX [Concomitant]
     Active Substance: FUROSEMIDE
     Indication: PROPHYLAXIS
     Dosage: UNK, QD
     Route: 042
     Dates: start: 20191025, end: 20191026
  11. MEGACE F [Concomitant]
     Indication: DECREASED APPETITE
  12. DUPHALAC EASY [Concomitant]
     Active Substance: LACTULOSE
     Indication: CONSTIPATION PROPHYLAXIS
     Dosage: UNK UNK, QD
     Route: 048
     Dates: start: 20191101, end: 20191101
  13. PARIET [Concomitant]
     Active Substance: RABEPRAZOLE SODIUM
     Indication: GASTROINTESTINAL DISORDER PROPHYLAXIS
     Dosage: UNK UNK, QD
     Route: 048
     Dates: start: 20191005, end: 20191205
  14. ADRIAMYCIN [Concomitant]
     Active Substance: DOXORUBICIN HYDROCHLORIDE
     Indication: CHEMOTHERAPY
     Dosage: 50 MILLIGRAM, QD
     Route: 042
     Dates: start: 20191026, end: 20191026
  15. EMEND [Concomitant]
     Active Substance: APREPITANT
     Indication: PROPHYLAXIS OF NAUSEA AND VOMITING
     Dosage: UNK UNK, QD
     Route: 048
     Dates: start: 20191023, end: 20191023
  16. EMEND [Concomitant]
     Active Substance: APREPITANT
     Dosage: UNK UNK, QD
     Route: 048
     Dates: start: 20191024, end: 20191025
  17. VINCRISTINE SULFATE. [Concomitant]
     Active Substance: VINCRISTINE SULFATE
     Dosage: 1.6 MILLIGRAM, QD
     Route: 042
     Dates: start: 20191102, end: 20191102
  18. NEUTROGIN [Concomitant]
     Active Substance: LENOGRASTIM
     Indication: NEUTROPHIL COUNT DECREASED
     Dosage: UNK UNK, QD
     Route: 058
     Dates: start: 20191106, end: 20191109
  19. URSA [Concomitant]
     Active Substance: URSODIOL
     Indication: LIVER DISORDER
  20. SANCUSO [Concomitant]
     Active Substance: GRANISETRON
     Indication: PROPHYLAXIS OF NAUSEA AND VOMITING
  21. UROMITEXAN [Concomitant]
     Active Substance: MESNA
     Indication: CHEMOTHERAPY SIDE EFFECT PROPHYLAXIS
     Dosage: 220 MILLIGRAM, TID
     Route: 042
     Dates: start: 20191023, end: 20191025
  22. LIDOCAINE. [Concomitant]
     Active Substance: LIDOCAINE
     Indication: ANAESTHESIA
  23. LASIX [Concomitant]
     Active Substance: FUROSEMIDE
     Indication: URINE OUTPUT DECREASED
     Dosage: UNK, QD
     Route: 042
     Dates: start: 20191026, end: 20191026
  24. MEGACE F [Concomitant]
     Indication: PROPHYLAXIS
     Dosage: UNK UNK, QD
     Route: 048
     Dates: start: 20191030, end: 20191205
  25. MEGACE F [Concomitant]
     Indication: DECREASED APPETITE
  26. PONATINIB [Suspect]
     Active Substance: PONATINIB
     Indication: PHILADELPHIA POSITIVE ACUTE LYMPHOCYTIC LEUKAEMIA
     Dosage: 45 MILLIGRAM, QD
     Route: 048
     Dates: start: 20191009, end: 20191107
  27. DILATREN [Concomitant]
     Indication: CHEST PAIN
     Dosage: UNK UNK, BID
     Route: 048
     Dates: start: 20170320
  28. FLUCOZOLE [Concomitant]
     Indication: INFECTION PROPHYLAXIS
     Dosage: UNK, BID
     Route: 048
     Dates: start: 20191023, end: 20191115
  29. LIDOCAINE. [Concomitant]
     Active Substance: LIDOCAINE
     Indication: ANAESTHESIA
     Dosage: UNK UNK, QD
     Route: 042
     Dates: start: 20191024, end: 20191024
  30. DIABEX [Concomitant]
     Active Substance: METFORMIN HYDROCHLORIDE
     Dosage: UNK UNK, BID
     Route: 048
     Dates: start: 20181129
  31. TACOPEN [Concomitant]
     Indication: FLANK PAIN
     Dosage: UNK UNK, TID
     Route: 048
     Dates: start: 20191010, end: 20191204
  32. ADRIAMYCIN [Concomitant]
     Active Substance: DOXORUBICIN HYDROCHLORIDE
     Dosage: 10 MILLIGRAM, QD
     Route: 042
     Dates: start: 20191026, end: 20191026
  33. MACPERAN [Concomitant]
     Active Substance: METOCLOPRAMIDE HYDROCHLORIDE
     Indication: NAUSEA
     Dosage: UNK UNK, QD
     Route: 042
     Dates: start: 20191027, end: 20191027
  34. KASHUT [Concomitant]
     Indication: HYPERKALAEMIA
     Dosage: UNK UNK, BID
     Route: 048
     Dates: start: 20191104, end: 20191104
  35. PONATINIB [Suspect]
     Active Substance: PONATINIB
     Dosage: 45 MILLIGRAM, QD
     Route: 048
     Dates: start: 20191205
  36. GASMOTIN [Concomitant]
     Active Substance: MOSAPRIDE CITRATE
     Indication: GASTROINTESTINAL DISORDER PROPHYLAXIS
     Dosage: UNK UNK, TID
     Route: 048
     Dates: start: 20191006, end: 20191205

REACTIONS (6)
  - Nausea [Recovered/Resolved]
  - Urticaria [Recovered/Resolved]
  - Bronchopulmonary aspergillosis [Recovered/Resolved]
  - Hyperkalaemia [Recovered/Resolved]
  - Neutrophil count decreased [Recovered/Resolved]
  - Paraesthesia [Not Recovered/Not Resolved]

NARRATIVE: CASE EVENT DATE: 20191014
